FAERS Safety Report 7534537-3 (Version None)
Quarter: 2011Q2

REPORT INFORMATION
  Report Type: 
  Country: None (occurrence: None)
  Receive Date: 20110609
  Receipt Date: 20091208
  Transmission Date: 20111010
  Serious: Yes (Death, Other)
  Sender: FDA-Public Use
  Company Number: PHHY2008JP09026

PATIENT
  Sex: Male
  Weight: 51 kg

DRUGS (13)
  1. ZOLEDRONIC ACID [Suspect]
     Indication: METASTASES TO SPINE
     Dosage: 4 MG, UNK
     Route: 042
     Dates: start: 20071214, end: 20080201
  2. OXYCONTIN [Concomitant]
     Indication: CANCER PAIN
     Dosage: 20 MG, UNK
     Route: 048
     Dates: start: 20080128, end: 20080221
  3. PARAPLATIN [Concomitant]
     Indication: SMALL CELL LUNG CANCER STAGE UNSPECIFIED
     Dosage: 450 MG, UNK
     Route: 042
     Dates: start: 20080212
  4. PREDNISOLONE [Concomitant]
     Dosage: 40 MG, QD
  5. NEUTROGIN [Concomitant]
     Dosage: 250 UG, UNK
     Route: 042
     Dates: end: 20080301
  6. NEUTROGIN [Concomitant]
     Indication: NEUTROPENIA
     Dosage: 100 UG, UNK
     Route: 058
     Dates: start: 20071203
  7. RADIOTHERAPY [Concomitant]
     Dosage: 55 GY, UNK
     Dates: start: 20071126
  8. VEPESID [Concomitant]
     Indication: SMALL CELL LUNG CANCER STAGE UNSPECIFIED
     Dosage: 100 MG, UNK
     Route: 042
     Dates: start: 20071203, end: 20080111
  9. RADIOTHERAPY [Concomitant]
     Dosage: 44 GY
     Dates: start: 20071212, end: 20080122
  10. CAMPTOSAR [Concomitant]
     Indication: SMALL CELL LUNG CANCER STAGE UNSPECIFIED
     Dosage: 60 MG, UNK
     Route: 042
     Dates: start: 20080212
  11. CISPLATIN [Concomitant]
     Indication: SMALL CELL LUNG CANCER STAGE UNSPECIFIED
     Dosage: 100 MG, UNK
     Route: 042
     Dates: start: 20071205, end: 20080109
  12. DIAZEPAM [Concomitant]
     Indication: INSOMNIA
     Dosage: 5 MG, UNK
     Route: 048
     Dates: start: 20071130, end: 20080221
  13. ADALAT CC [Concomitant]
     Indication: HYPERTENSION
     Dosage: 20 MG, UNK
     Route: 048
     Dates: start: 20071119, end: 20080124

REACTIONS (9)
  - NEOPLASM MALIGNANT [None]
  - FACE OEDEMA [None]
  - ERYTHEMA [None]
  - BLOOD CREATINE PHOSPHOKINASE INCREASED [None]
  - SMALL CELL LUNG CANCER METASTATIC [None]
  - DERMATOMYOSITIS [None]
  - BACK PAIN [None]
  - METASTASES TO BONE [None]
  - BONE MARROW FAILURE [None]
